FAERS Safety Report 11841510 (Version 1)
Quarter: 2015Q4

REPORT INFORMATION
  Report Type: Spontaneous
  Country: US (occurrence: US)
  Receive Date: 20151216
  Receipt Date: 20151216
  Transmission Date: 20160305
  Serious: No
  Sender: FDA-Public Use
  Company Number: US-BAUSCH-BL-2015-021135

PATIENT
  Age: 56 Year
  Sex: Male
  Weight: 70.37 kg

DRUGS (4)
  1. ATRIPLA [Concomitant]
     Active Substance: EFAVIRENZ\EMTRICITABINE\TENOFOVIR DISOPROXIL FUMARATE
     Indication: HIV INFECTION
     Route: 048
  2. APRISO [Suspect]
     Active Substance: MESALAMINE
     Indication: VIRAL DIARRHOEA
     Route: 048
     Dates: start: 20150408, end: 201504
  3. LOSARTAN 25 MG [Concomitant]
     Indication: PROPHYLAXIS
     Route: 048
  4. METFORMIN [Concomitant]
     Active Substance: METFORMIN HYDROCHLORIDE
     Route: 048

REACTIONS (4)
  - Off label use [Recovered/Resolved]
  - Acne [Recovered/Resolved]
  - Chest pain [Recovered/Resolved]
  - Abdominal pain upper [Recovered/Resolved]

NARRATIVE: CASE EVENT DATE: 201504
